FAERS Safety Report 8789921 (Version 1)
Quarter: 2012Q4

REPORT INFORMATION
  Report Type: Report from Study
  Country: US (occurrence: US)
  Receive Date: 20120917
  Receipt Date: 20120917
  Transmission Date: 20130627
  Serious: Yes (Other)
  Sender: FDA-Public Use
  Company Number: US-JNJFOC-20120905028

PATIENT
  Age: 12 Year
  Sex: Male
  Weight: 35.7 kg

DRUGS (4)
  1. REMICADE [Suspect]
     Indication: CROHN^S DISEASE
     Route: 042
     Dates: start: 20111128
  2. FLAGYL [Suspect]
     Indication: CLOSTRIDIAL INFECTION
     Dates: start: 20120418
  3. IRON [Concomitant]
  4. MULTIVIT [Concomitant]

REACTIONS (1)
  - Dehydration [Recovered/Resolved]
